FAERS Safety Report 9720046 (Version 1)
Quarter: 2013Q4

REPORT INFORMATION
  Report Type: Spontaneous
  Country: US (occurrence: US)
  Receive Date: 20131128
  Receipt Date: 20131128
  Transmission Date: 20140711
  Serious: Yes (Other)
  Sender: FDA-Public Use
  Company Number: US-BRISTOL-MYERS SQUIBB COMPANY-19832302

PATIENT
  Age: 62 Year
  Sex: Female
  Weight: 53.51 kg

DRUGS (1)
  1. ABILIFY [Suspect]
     Indication: BIPOLAR II DISORDER

REACTIONS (11)
  - Systemic lupus erythematosus [Unknown]
  - Suicidal ideation [Unknown]
  - Dysgeusia [Unknown]
  - Weight decreased [Unknown]
  - Dry mouth [Unknown]
  - Insomnia [Unknown]
  - Restlessness [Unknown]
  - Constipation [Unknown]
  - Drug ineffective [Unknown]
  - Psychomotor hyperactivity [Unknown]
  - Decreased appetite [Unknown]
